FAERS Safety Report 20245218 (Version 1)
Quarter: 2021Q4

REPORT INFORMATION
  Report Type: Spontaneous
  Country: IT (occurrence: IT)
  Receive Date: 20211229
  Receipt Date: 20211229
  Transmission Date: 20220303
  Serious: Yes (Hospitalization, Other)
  Sender: FDA-Public Use
  Company Number: IT-009507513-2112ITA002986

PATIENT
  Age: 73 Year
  Sex: Male

DRUGS (2)
  1. AXITINIB [Suspect]
     Active Substance: AXITINIB
     Indication: Metastatic renal cell carcinoma
     Dosage: AFTER 3 CYCLES INTERRUPTED
  2. KEYTRUDA [Suspect]
     Active Substance: PEMBROLIZUMAB
     Indication: Metastatic renal cell carcinoma
     Dosage: AFTER 3 CYCLES DISCONTINUED

REACTIONS (2)
  - Renal failure [Unknown]
  - Immune-mediated nephritis [Recovered/Resolved with Sequelae]
